FAERS Safety Report 4725881-3 (Version None)
Quarter: 2005Q3

REPORT INFORMATION
  Report Type: 
  Country: None (occurrence: None)
  Receive Date: 20050727
  Receipt Date: 20031117
  Transmission Date: 20060218
  Serious: Yes (Hospitalization, Disabling)
  Sender: FDA-Public Use
  Company Number: US-MERCK-0311USA02216

PATIENT
  Age: 58 Year
  Sex: Female

DRUGS (6)
  1. VIOXX [Suspect]
     Indication: TENDONITIS
     Route: 048
     Dates: start: 20000824, end: 20000828
  2. VIOXX [Suspect]
     Indication: ARTHRALGIA
     Route: 048
     Dates: start: 20000824, end: 20000828
  3. SYNTHROID [Concomitant]
     Route: 065
  4. FOSAMAX [Concomitant]
     Route: 048
  5. PRILOSEC [Concomitant]
     Route: 065
  6. ZOCOR [Concomitant]
     Route: 048

REACTIONS (6)
  - ADVERSE EVENT [None]
  - CORONARY ARTERY DISEASE [None]
  - DIVERTICULUM INTESTINAL [None]
  - DIZZINESS [None]
  - MUSCLE STRAIN [None]
  - MYOCARDIAL INFARCTION [None]
